FAERS Safety Report 25348050 (Version 1)
Quarter: 2025Q2

REPORT INFORMATION
  Report Type: Spontaneous
  Country: SK (occurrence: SK)
  Receive Date: 20250522
  Receipt Date: 20250522
  Transmission Date: 20250716
  Serious: Yes (Death, Other)
  Sender: JAZZ
  Company Number: SK-JAZZ PHARMACEUTICALS-2025-SK-012933

PATIENT

DRUGS (1)
  1. CANNABIDIOL [Suspect]
     Active Substance: CANNABIDIOL
     Indication: Lennox-Gastaut syndrome
     Route: 048

REACTIONS (2)
  - Death [Fatal]
  - Coma [Unknown]

NARRATIVE: CASE EVENT DATE: 20250401
